FAERS Safety Report 8932265 (Version 3)
Quarter: 2013Q1

REPORT INFORMATION
  Report Type: Spontaneous
  Country: US (occurrence: US)
  Receive Date: 20121128
  Receipt Date: 20130213
  Transmission Date: 20140127
  Serious: Yes (Death, Other)
  Sender: FDA-Public Use
  Company Number: PHEH2012US023166

PATIENT
  Sex: Female
  Weight: 67.58 kg

DRUGS (3)
  1. STALEVO [Suspect]
     Indication: PARKINSON^S DISEASE
     Dosage: UNK UKN, UNK
     Dates: start: 2009, end: 2010
  2. POTASSIUM [Concomitant]
  3. VITAMINS [Concomitant]

REACTIONS (2)
  - Cardiac arrest [Fatal]
  - Coronary artery restenosis [Unknown]
